FAERS Safety Report 18553808 (Version 2)
Quarter: 2020Q4

REPORT INFORMATION
  Report Type: Spontaneous
  Country: NL (occurrence: NL)
  Receive Date: 20201127
  Receipt Date: 20201201
  Transmission Date: 20210114
  Serious: Yes (Life-Threatening, Other)
  Sender: FDA-Public Use
  Company Number: NL-AUROBINDO-AUR-APL-2020-058890

PATIENT
  Sex: Male
  Weight: 95 kg

DRUGS (6)
  1. CYTARABINE. [Suspect]
     Active Substance: CYTARABINE
     Indication: PRODUCT USED FOR UNKNOWN INDICATION
     Dosage: 444 MILLIGRAM
     Route: 065
     Dates: start: 20201112
  2. CARMUSTINE. [Suspect]
     Active Substance: CARMUSTINE
     Indication: HODGKIN^S DISEASE
     Dosage: UNK, 666
     Route: 065
     Dates: start: 20201112
  3. CIPROFLOXACIN 500 MG FILM-COATED TABLET [Suspect]
     Active Substance: CIPROFLOXACIN
     Indication: NEUTROPENIA
     Dosage: 1 DOSAGE FORM, TWO TIMES A DAY
     Route: 065
     Dates: start: 20201112
  4. FLUCONAZOLE CAPSULES, HARD 200MG [Suspect]
     Active Substance: FLUCONAZOLE
     Indication: NEUTROPENIA
     Dosage: 1 DOSAGE FORM, ONCE A DAY
     Route: 065
     Dates: start: 20201112, end: 20201119
  5. MELPHALAN INJECTION [Suspect]
     Active Substance: MELPHALAN
     Indication: HODGKIN^S DISEASE
     Dosage: 311 MILLIGRAM
     Route: 065
     Dates: start: 20201112
  6. EPOSIN [Suspect]
     Active Substance: ETOPOSIDE
     Indication: PRODUCT USED FOR UNKNOWN INDICATION
     Dosage: 222
     Route: 065
     Dates: start: 20201112

REACTIONS (1)
  - Epilepsy [Recovered/Resolved]

NARRATIVE: CASE EVENT DATE: 20201118
